FAERS Safety Report 13671327 (Version 1)
Quarter: 2017Q2

REPORT INFORMATION
  Report Type: Spontaneous
  Country: US (occurrence: US)
  Receive Date: 20170620
  Receipt Date: 20170620
  Transmission Date: 20170830
  Serious: No
  Sender: FDA-Public Use
  Company Number: US-ROCHE-1393590

PATIENT
  Sex: Female

DRUGS (17)
  1. EMEND [Concomitant]
     Active Substance: APREPITANT
  2. AMITIZA [Concomitant]
     Active Substance: LUBIPROSTONE
  3. XELODA [Suspect]
     Active Substance: CAPECITABINE
     Indication: GASTRIC CANCER
     Dosage: 1000 MG QAM, 1500 MG QPM
     Route: 048
     Dates: start: 20131110
  4. REGULAN [Concomitant]
  5. FLUOROMETHOLONE. [Concomitant]
     Active Substance: FLUOROMETHOLONE
  6. NEXIUM [Concomitant]
     Active Substance: ESOMEPRAZOLE MAGNESIUM
  7. ZOLOFT [Concomitant]
     Active Substance: SERTRALINE HYDROCHLORIDE
  8. CHLORPROMAZINE. [Concomitant]
     Active Substance: CHLORPROMAZINE
  9. TRANXENE T-TAB [Concomitant]
     Active Substance: CLORAZEPATE DIPOTASSIUM
  10. ONDANSETRON [Concomitant]
     Active Substance: ONDANSETRON
  11. HUMALOG [Concomitant]
     Active Substance: INSULIN LISPRO
  12. PREDNISONE. [Concomitant]
     Active Substance: PREDNISONE
  13. FLEXERIL [Concomitant]
     Active Substance: CYCLOBENZAPRINE HYDROCHLORIDE
  14. LOVASTATIN. [Concomitant]
     Active Substance: LOVASTATIN
  15. PLAVIX [Concomitant]
     Active Substance: CLOPIDOGREL BISULFATE
  16. LANTUS [Concomitant]
     Active Substance: INSULIN GLARGINE
  17. LEVOTHYROXINE. [Concomitant]
     Active Substance: LEVOTHYROXINE

REACTIONS (2)
  - Oral pain [Recovered/Resolved]
  - Pain in extremity [Recovered/Resolved]
